FAERS Safety Report 6529491-7 (Version None)
Quarter: 2010Q1

REPORT INFORMATION
  Report Type: 
  Country: None (occurrence: None)
  Receive Date: 20100107
  Receipt Date: 20100105
  Transmission Date: 20100710
  Serious: Yes (Hospitalization)
  Sender: FDA-Public Use
  Company Number: PHHY2009FR58988

PATIENT
  Sex: Female

DRUGS (3)
  1. FEMARA [Suspect]
     Indication: BREAST CANCER
     Dosage: UNK
     Route: 048
     Dates: start: 20090815, end: 20091109
  2. NITRENDIPINE [Concomitant]
  3. INFLUENZA VACCINE [Concomitant]
     Dosage: UNK
     Dates: start: 20091001

REACTIONS (10)
  - C-REACTIVE PROTEIN INCREASED [None]
  - CYTOLYTIC HEPATITIS [None]
  - ERYTHEMA MULTIFORME [None]
  - INFLAMMATION [None]
  - ORAL DISORDER [None]
  - PRURITUS [None]
  - PYREXIA [None]
  - RASH [None]
  - SKIN LESION [None]
  - THROMBOCYTOPENIA [None]
